FAERS Safety Report 6717874-1 (Version None)
Quarter: 2010Q2

REPORT INFORMATION
  Report Type: 
  Country: None (occurrence: None)
  Receive Date: 20100510
  Receipt Date: 20100426
  Transmission Date: 20101027
  Serious: Yes (Other)
  Sender: FDA-Public Use
  Company Number: IT-CELGENEUS-083-20785-10042211

PATIENT
  Sex: Female

DRUGS (1)
  1. THALIDOMIDE [Suspect]
     Indication: MULTIPLE MYELOMA
     Route: 048
     Dates: start: 20091029, end: 20091225

REACTIONS (3)
  - DIABETES MELLITUS INADEQUATE CONTROL [None]
  - HEMIPLEGIA [None]
  - KLEBSIELLA SEPSIS [None]
